FAERS Safety Report 12040239 (Version 2)
Quarter: 2016Q1

REPORT INFORMATION
  Report Type: Spontaneous
  Country: DE (occurrence: DE)
  Receive Date: 20160208
  Receipt Date: 20160308
  Transmission Date: 20160526
  Serious: Yes (Death, Other)
  Sender: FDA-Public Use
  Company Number: DE-ROCHE-1707339

PATIENT
  Age: 58 Year
  Sex: Female
  Weight: 76 kg

DRUGS (12)
  1. CLEXANE [Concomitant]
     Active Substance: ENOXAPARIN SODIUM
     Indication: THROMBOSIS PROPHYLAXIS
     Route: 058
     Dates: start: 20160120, end: 20160204
  2. PERJETA [Suspect]
     Active Substance: PERTUZUMAB
     Indication: BREAST CANCER METASTATIC
     Dosage: IN 250ML SODIUM CHLORIDE 0.9%
     Route: 042
     Dates: start: 20160106
  3. PERJETA [Suspect]
     Active Substance: PERTUZUMAB
     Dosage: SECOND DOSE
     Route: 042
     Dates: start: 20160204
  4. DOCETAXEL. [Suspect]
     Active Substance: DOCETAXEL
     Indication: BREAST CANCER METASTATIC
     Route: 042
     Dates: start: 20160106
  5. FLUCONAZOL [Concomitant]
     Active Substance: FLUCONAZOLE
     Indication: ORAL CANDIDIASIS
     Route: 065
     Dates: start: 20160118, end: 20160204
  6. JONOSTERIL [Concomitant]
     Active Substance: CALCIUM ACETATE\MAGNESIUM ACETATE\POTASSIUM ACETATE\SODIUM ACETATE\SODIUM CHLORIDE
     Route: 042
  7. HERCEPTIN [Suspect]
     Active Substance: TRASTUZUMAB
     Indication: BREAST CANCER METASTATIC
     Route: 042
     Dates: start: 20160106
  8. CALCITRIOL. [Concomitant]
     Active Substance: CALCITRIOL
     Indication: HYPOKALAEMIA
     Route: 048
     Dates: start: 20160202, end: 20160204
  9. PANTOZOL [Concomitant]
     Active Substance: PANTOPRAZOLE SODIUM
     Route: 058
     Dates: start: 20160120, end: 20160204
  10. NACL .9% [Concomitant]
     Route: 042
  11. FURESIS [Concomitant]
     Active Substance: FUROSEMIDE
     Indication: OEDEMA
     Route: 048
     Dates: start: 20160131, end: 20160204
  12. MEROPENEM. [Concomitant]
     Active Substance: MEROPENEM
     Route: 042
     Dates: start: 20160115, end: 20160123

REACTIONS (2)
  - Respiratory distress [Fatal]
  - Sepsis [Unknown]

NARRATIVE: CASE EVENT DATE: 20160106
